FAERS Safety Report 9907046 (Version 2)
Quarter: 2014Q1

REPORT INFORMATION
  Report Type: Spontaneous
  Country: US (occurrence: US)
  Receive Date: 20140218
  Receipt Date: 20140218
  Transmission Date: 20141002
  Serious: Yes (Other)
  Sender: FDA-Public Use
  Company Number: US-US-EMD SERONO, INC.-7132048

PATIENT
  Age: 49 Year
  Sex: Female
  Weight: 82 kg

DRUGS (2)
  1. REBIF [Suspect]
     Indication: MULTIPLE SCLEROSIS
     Route: 058
     Dates: start: 20091231
  2. CLONAZEPAM [Concomitant]
     Indication: MENTAL DISORDER
     Dates: start: 1990

REACTIONS (2)
  - Injection site abscess [Not Recovered/Not Resolved]
  - Depression [Not Recovered/Not Resolved]
